FAERS Safety Report 12503019 (Version 3)
Quarter: 2016Q3

REPORT INFORMATION
  Report Type: Spontaneous
  Country: NL (occurrence: NL)
  Receive Date: 20160628
  Receipt Date: 20160723
  Transmission Date: 20161109
  Serious: Yes (Hospitalization)
  Sender: FDA-Public Use
  Company Number: NL-009507513-1606NLD009533

PATIENT
  Age: 16 Year
  Sex: Female
  Weight: 58 kg

DRUGS (2)
  1. MIRTAZAPINE. [Suspect]
     Active Substance: MIRTAZAPINE
     Indication: DEPRESSION
     Dosage: 1 TIME PER DAY 0.5 PIECE(S)
     Route: 048
     Dates: start: 20141025, end: 20160121
  2. MELATONIN [Concomitant]
     Active Substance: MELATONIN
     Dosage: 1 TIME PER DAY 1 PIECE(S)
     Route: 048
     Dates: start: 201409

REACTIONS (2)
  - Epilepsy [Recovered/Resolved]
  - Myoclonic epilepsy [Recovered/Resolved]

NARRATIVE: CASE EVENT DATE: 20141101
